FAERS Safety Report 6760423-2 (Version None)
Quarter: 2010Q2

REPORT INFORMATION
  Report Type: 
  Country: None (occurrence: None)
  Receive Date: 20100608
  Receipt Date: 20100526
  Transmission Date: 20101027
  Serious: Yes (Other)
  Sender: FDA-Public Use
  Company Number: PHHY2009BE48632

PATIENT
  Sex: Female
  Weight: 51.3 kg

DRUGS (4)
  1. EXJADE [Suspect]
     Indication: THALASSAEMIA
     Dosage: 1500 MG DAILY
     Route: 048
     Dates: start: 20080701, end: 20091001
  2. EXJADE [Suspect]
     Indication: IRON OVERLOAD
  3. LAMIVUDINE [Concomitant]
     Indication: HEPATITIS C
  4. RIBAVIRIN [Concomitant]

REACTIONS (2)
  - ABORTION INDUCED [None]
  - DRUG EXPOSURE DURING PREGNANCY [None]
